FAERS Safety Report 8061997 (Version 4)
Quarter: 2013Q2

REPORT INFORMATION
  Report Type: Spontaneous
  Country: US (occurrence: US)
  Receive Date: 20110801
  Receipt Date: 20130521
  Transmission Date: 20140414
  Serious: Yes (Hospitalization, Other)
  Sender: FDA-Public Use
  Company Number: US-BIOGENIDEC-2011BI027354

PATIENT
  Age: 44 Year
  Sex: Female

DRUGS (1)
  1. TYSABRI [Suspect]
     Indication: MULTIPLE SCLEROSIS
     Route: 042
     Dates: start: 20090917, end: 201305

REACTIONS (4)
  - Muscular weakness [Recovered/Resolved]
  - Knee arthroplasty [Recovered/Resolved]
  - Fall [Recovered/Resolved]
  - Poor venous access [Recovered/Resolved]
